FAERS Safety Report 5602904-0 (Version None)
Quarter: 2008Q1

REPORT INFORMATION
  Report Type: 
  Country: None (occurrence: None)
  Receive Date: 20080125
  Receipt Date: 20080118
  Transmission Date: 20080703
  Serious: Yes (Death)
  Sender: FDA-Public Use
  Company Number: FR-BOEHRINGER INGELHEIM PHARMACEUTICALS, INC.-2008-FF-00048FF

PATIENT
  Sex: Male

DRUGS (2)
  1. SPIRIVA [Suspect]
     Indication: EMPHYSEMA
     Route: 055
     Dates: start: 20070301, end: 20070501
  2. SPIRIVA [Suspect]
     Dosage: ONE CAPSULE EVERY OTHER DAY
     Route: 055
     Dates: start: 20070501, end: 20071001

REACTIONS (4)
  - ANAEMIA [None]
  - LEUKOPENIA [None]
  - MULTIPLE MYELOMA [None]
  - THROMBOCYTOPENIA [None]
